FAERS Safety Report 12573116 (Version 1)
Quarter: 2016Q3

REPORT INFORMATION
  Report Type: Spontaneous
  Country: US (occurrence: None)
  Receive Date: 20160719
  Receipt Date: 20160719
  Transmission Date: 20161109
  Serious: Yes (Death, Hospitalization)
  Sender: FDA-Public Use
  Company Number: None

PATIENT
  Age: 80 Year
  Sex: Female

DRUGS (1)
  1. PRADAXA [Suspect]
     Active Substance: DABIGATRAN ETEXILATE MESYLATE
     Indication: ATRIAL FIBRILLATION
     Route: 048
     Dates: end: 20150804

REACTIONS (13)
  - Internal haemorrhage [None]
  - Therapy cessation [None]
  - Humerus fracture [None]
  - Pelvic fracture [None]
  - Deep vein thrombosis [None]
  - Emotional disorder [None]
  - Pulmonary embolism [None]
  - Cerebrovascular accident [None]
  - Delirium [None]
  - Mental disorder [None]
  - Activities of daily living impaired [None]
  - Back pain [None]
  - Aphasia [None]

NARRATIVE: CASE EVENT DATE: 20150805
